APPROVED DRUG PRODUCT: VANCOMYCIN HYDROCHLORIDE
Active Ingredient: VANCOMYCIN HYDROCHLORIDE
Strength: EQ 125MG BASE
Dosage Form/Route: CAPSULE;ORAL
Application: A065453 | Product #001
Applicant: FRESENIUS KABI USA LLC
Approved: Jun 18, 2012 | RLD: No | RS: No | Type: DISCN